FAERS Safety Report 8549589-1 (Version None)
Quarter: 2012Q3

REPORT INFORMATION
  Report Type: 
  Country: None (occurrence: None)
  Receive Date: 20120730
  Receipt Date: 20120720
  Transmission Date: 20120928
  Serious: Yes (Hospitalization)
  Sender: FDA-Public Use
  Company Number: US-ABBOTT-12P-163-0959267-00

PATIENT
  Sex: Female

DRUGS (6)
  1. FOLIC ACID [Concomitant]
     Indication: PRODUCT USED FOR UNKNOWN INDICATION
     Dosage: 1MG DAILY
  2. METHOTREXATE [Concomitant]
     Indication: PRODUCT USED FOR UNKNOWN INDICATION
     Dosage: 15 MG WEEKLY
     Route: 050
  3. METHYLDOPA [Concomitant]
     Indication: PRODUCT USED FOR UNKNOWN INDICATION
     Dosage: TAPERING OFF CURRENT 250MG  TAPERING OFF, CURRENT 250MG DAILY
     Dates: start: 20120601
  4. PROZAC [Concomitant]
     Indication: SYNCOPE
  5. HUMIRA [Suspect]
     Indication: RHEUMATOID ARTHRITIS
     Dates: start: 20120501
  6. METHOTREXATE [Suspect]
     Indication: RHEUMATOID ARTHRITIS

REACTIONS (10)
  - HEADACHE [None]
  - PHOTOPHOBIA [None]
  - MUSCLE DISORDER [None]
  - ASTHENIA [None]
  - HEMIPARESIS [None]
  - HYPERACUSIS [None]
  - MENINGITIS ASEPTIC [None]
  - COORDINATION ABNORMAL [None]
  - MUSCULOSKELETAL STIFFNESS [None]
  - SYNCOPE [None]
